FAERS Safety Report 10265492 (Version 1)
Quarter: 2014Q2

REPORT INFORMATION
  Report Type: Spontaneous
  Country: DE (occurrence: DE)
  Receive Date: 20140627
  Receipt Date: 20140627
  Transmission Date: 20141212
  Serious: Yes (Death)
  Sender: FDA-Public Use
  Company Number: DE-TEVA-489775GER

PATIENT
  Age: 58 Year
  Sex: Female

DRUGS (5)
  1. VALPROIC ACID [Suspect]
     Indication: BIPOLAR I DISORDER
     Route: 065
  2. RISPERIDONE [Suspect]
     Route: 065
  3. CANDESARTAN CILEXETIL [Suspect]
     Route: 065
  4. LORAZEPAM [Suspect]
     Route: 065
  5. DULOXETINE [Suspect]
     Route: 065

REACTIONS (1)
  - Hepatic failure [Fatal]
